FAERS Safety Report 11995824 (Version 1)
Quarter: 2016Q1

REPORT INFORMATION
  Report Type: Spontaneous
  Country: GB (occurrence: GB)
  Receive Date: 20160203
  Receipt Date: 20160203
  Transmission Date: 20160526
  Serious: Yes (Other)
  Sender: FDA-Public Use
  Company Number: GB-VIIV HEALTHCARE LIMITED-GB2016GSK013701

PATIENT
  Sex: Male

DRUGS (7)
  1. TENOFOVIR DISOPROXIL FUMARATE. [Suspect]
     Active Substance: TENOFOVIR DISOPROXIL FUMARATE
     Indication: PRODUCT USED FOR UNKNOWN INDICATION
  2. ZIDOVUDINE. [Suspect]
     Active Substance: ZIDOVUDINE
     Indication: PRODUCT USED FOR UNKNOWN INDICATION
     Route: 064
  3. ABACAVIR. [Suspect]
     Active Substance: ABACAVIR
     Indication: ANTIRETROVIRAL THERAPY
  4. NEVIRAPINE. [Concomitant]
     Active Substance: NEVIRAPINE
     Indication: ANTIRETROVIRAL THERAPY
  5. ZIDOVUDINE. [Suspect]
     Active Substance: ZIDOVUDINE
     Indication: PROPHYLAXIS
     Dosage: UNK
     Route: 048
  6. LAMIVUDINE. [Concomitant]
     Active Substance: LAMIVUDINE
     Indication: ANTIRETROVIRAL THERAPY
  7. LOPINAVIR AND RITONAVIR [Concomitant]
     Active Substance: LOPINAVIR\RITONAVIR
     Indication: PRODUCT USED FOR UNKNOWN INDICATION

REACTIONS (18)
  - Selective eating disorder [Unknown]
  - White matter lesion [Unknown]
  - CSF protein increased [Unknown]
  - Dysarthria [Recovered/Resolved]
  - Rash [Recovered/Resolved]
  - Gait disturbance [Unknown]
  - HIV infection [Unknown]
  - Abdominal pain [Recovered/Resolved]
  - Hepatic enzyme increased [Recovered/Resolved]
  - Vomiting [Unknown]
  - Dizziness [Unknown]
  - Pyrexia [Recovered/Resolved]
  - Hemiparesis [Recovered/Resolved]
  - Drug hypersensitivity [Unknown]
  - Urinary tract infection [Unknown]
  - Epstein-Barr virus test positive [Unknown]
  - Learning disability [Unknown]
  - Foetal exposure during pregnancy [Unknown]
